FAERS Safety Report 8560971-9 (Version None)
Quarter: 2012Q3

REPORT INFORMATION
  Report Type: 
  Country: None (occurrence: None)
  Receive Date: 20120723
  Receipt Date: 20120716
  Transmission Date: 20120928
  Serious: Yes (Other)
  Sender: FDA-Public Use
  Company Number: DSA_58543_2012

PATIENT
  Sex: Female

DRUGS (4)
  1. CLONAZEPAM [Concomitant]
  2. PAROXETINE [Concomitant]
  3. BACLOFEN [Concomitant]
  4. XENAZINE [Suspect]
     Indication: HUNTINGTON'S DISEASE
     Dosage: (12.5 MG BID ORAL)
     Route: 048
     Dates: start: 20110922, end: 20120701

REACTIONS (3)
  - MEMORY IMPAIRMENT [None]
  - CONFUSIONAL STATE [None]
  - THERAPY CESSATION [None]
